FAERS Safety Report 9373420 (Version 2)
Quarter: 2014Q3

REPORT INFORMATION
  Report Type: Spontaneous
  Country: US (occurrence: US)
  Receive Date: 20130627
  Receipt Date: 20140805
  Transmission Date: 20150326
  Serious: Yes (Hospitalization, Other)
  Sender: FDA-Public Use
  Company Number: US-009507513-1306USA013068

PATIENT
  Sex: Female
  Weight: 70.11 kg

DRUGS (1)
  1. NUVARING [Suspect]
     Active Substance: ETHINYL ESTRADIOL\ETONOGESTREL
     Indication: MENORRHAGIA
     Dosage: 0.015 MG-0.120 MG, Q3W
     Route: 067
     Dates: start: 20110307

REACTIONS (8)
  - Off label use [Unknown]
  - Pulmonary embolism [Unknown]
  - Constipation [Unknown]
  - Thrombophlebitis superficial [Recovering/Resolving]
  - Iron deficiency anaemia [Not Recovered/Not Resolved]
  - Left ventricular hypertrophy [Unknown]
  - Tricuspid valve incompetence [Unknown]
  - Right atrial dilatation [Unknown]

NARRATIVE: CASE EVENT DATE: 20110307
